FAERS Safety Report 17091857 (Version 1)
Quarter: 2019Q4

REPORT INFORMATION
  Report Type: Report from Study
  Country: BE (occurrence: BE)
  Receive Date: 20191129
  Receipt Date: 20191129
  Transmission Date: 20200122
  Serious: Yes (Hospitalization, Other)
  Sender: FDA-Public Use
  Company Number: BE-ROCHE-2142971

PATIENT
  Age: 78 Year
  Sex: Female

DRUGS (1)
  1. PIRFENIDONE. [Suspect]
     Active Substance: PIRFENIDONE
     Indication: IDIOPATHIC PULMONARY FIBROSIS
     Route: 065

REACTIONS (11)
  - Pruritus [Recovering/Resolving]
  - Spinal fracture [Recovering/Resolving]
  - Nausea [Recovering/Resolving]
  - Decreased appetite [Recovered/Resolved]
  - Hyponatraemia [Recovered/Resolved]
  - Gastrooesophageal reflux disease [Recovered/Resolved]
  - Gastrointestinal disorder [Recovering/Resolving]
  - Vomiting [Recovered/Resolved]
  - Rash [Unknown]
  - Fall [Unknown]
  - Urethritis [Recovered/Resolved]

NARRATIVE: CASE EVENT DATE: 20160606
